FAERS Safety Report 6676810-7 (Version None)
Quarter: 2010Q2

REPORT INFORMATION
  Report Type: 
  Country: None (occurrence: None)
  Receive Date: 20100412
  Receipt Date: 20100407
  Transmission Date: 20101027
  Serious: Yes (Death, Hospitalization)
  Sender: FDA-Public Use
  Company Number: FR-ROCHE-695905

PATIENT
  Sex: Female

DRUGS (10)
  1. ROCEPHIN [Suspect]
     Dosage: STRENGTH: 1G/ 10ML; POWDER AND SOLVENT FOR SOLUTION FOR INJECTION
     Route: 042
     Dates: start: 20100209, end: 20100213
  2. MINI-SINTROM [Interacting]
     Indication: ATRIAL FIBRILLATION
     Dosage: DOSE: DEPENDING ON INR
     Route: 048
     Dates: end: 20100210
  3. OFLOCET [Interacting]
     Dosage: STRENGTH: 200 MG/ 40 ML
     Route: 042
     Dates: start: 20100209, end: 20100213
  4. LASIX [Concomitant]
     Dosage: TWO IN THE MORNING AND ONE AT MIDDAY
  5. DIFFU K [Concomitant]
  6. FOZITEC [Concomitant]
  7. INIPOMP [Concomitant]
  8. BISOPROLOL FUMARATE [Concomitant]
  9. IMOVANE [Concomitant]
  10. ALLOPURINOL [Concomitant]
     Dosage: EVERY OTHER DAY

REACTIONS (1)
  - GASTROINTESTINAL HAEMORRHAGE [None]
